FAERS Safety Report 16317885 (Version 5)
Quarter: 2019Q3

REPORT INFORMATION
  Report Type: Spontaneous
  Country: JP (occurrence: JP)
  Receive Date: 20190516
  Receipt Date: 20190714
  Transmission Date: 20191004
  Serious: Yes (Death, Hospitalization, Other)
  Sender: FDA-Public Use
  Company Number: JP-009507513-1905JPN000767J

PATIENT
  Age: 79 Year
  Sex: Male
  Weight: 47 kg

DRUGS (2)
  1. KEYTRUDA [Suspect]
     Active Substance: PEMBROLIZUMAB
     Indication: TRANSITIONAL CELL CARCINOMA
     Dosage: 200 MILLIGRAM, Q3W
     Route: 041
     Dates: start: 20190117, end: 20190207
  2. BROTIZOLAM [Concomitant]
     Active Substance: BROTIZOLAM
     Indication: INSOMNIA
     Dosage: 0.25 MILLIGRAM
     Route: 048

REACTIONS (16)
  - Hepatic fibrosis [Unknown]
  - Hepatic encephalopathy [Unknown]
  - Decreased appetite [Unknown]
  - Hepatic failure [Fatal]
  - Pseudomembranous colitis [Not Recovered/Not Resolved]
  - Clostridium difficile colitis [Unknown]
  - Hyponatraemia [Unknown]
  - Disseminated intravascular coagulation [Fatal]
  - Pleural effusion [Unknown]
  - Platelet count decreased [Unknown]
  - Dehydration [Unknown]
  - Drug-induced liver injury [Fatal]
  - Hepatic atrophy [Unknown]
  - Hepatic cirrhosis [Fatal]
  - Hypoalbuminaemia [Unknown]
  - Ascites [Unknown]

NARRATIVE: CASE EVENT DATE: 2019
